FAERS Safety Report 8417163-3 (Version None)
Quarter: 2012Q2

REPORT INFORMATION
  Report Type: 
  Country: None (occurrence: None)
  Receive Date: 20120606
  Receipt Date: 20120601
  Transmission Date: 20120825
  Serious: Yes (Other)
  Sender: FDA-Public Use
  Company Number: US-PFIZER INC-2012117317

PATIENT
  Sex: Male
  Weight: 78.46 kg

DRUGS (9)
  1. DOXYCYCLINE [Concomitant]
     Indication: ERYTHEMA
  2. LIPITOR [Suspect]
     Indication: BLOOD CHOLESTEROL ABNORMAL
     Dosage: UNK
  3. LIPITOR [Suspect]
     Dosage: 40 MG, DAILY
     Dates: end: 20120101
  4. DOXYCYCLINE [Concomitant]
     Indication: FLUSHING
     Dosage: 1000 MG, DAILY
  5. METOPROLOL [Concomitant]
     Indication: CARDIAC DISORDER
     Dosage: 25 MG,TWO TIMES A DAY
  6. ALTACE [Concomitant]
     Indication: CARDIAC DISORDER
     Dosage: 2.5 MG, DAILY
  7. ASPIRIN [Concomitant]
     Dosage: 81 MG, DAILY
  8. ATORVASTATIN CALCIUM [Suspect]
     Indication: BLOOD CHOLESTEROL ABNORMAL
     Dosage: 40 MG, DAILY
     Dates: start: 20120101
  9. PRILOSEC [Concomitant]
     Indication: GASTROOESOPHAGEAL REFLUX DISEASE
     Dosage: 20 MG, DAILY

REACTIONS (5)
  - GAIT DISTURBANCE [None]
  - MUSCULAR WEAKNESS [None]
  - DIZZINESS [None]
  - BALANCE DISORDER [None]
  - PAIN IN EXTREMITY [None]
